FAERS Safety Report 5737647-6 (Version None)
Quarter: 2008Q2

REPORT INFORMATION
  Report Type: 
  Country: None (occurrence: None)
  Receive Date: 20080507
  Receipt Date: 20070921
  Transmission Date: 20081010
  Serious: Yes (Hospitalization)
  Sender: FDA-Public Use
  Company Number: 520383

PATIENT
  Age: 38 Year
  Sex: Female

DRUGS (8)
  1. NAPROXEN [Suspect]
     Indication: ARTHRALGIA
     Dosage: 325 MG DAILY
  2. ACETAMINOPHEN [Suspect]
     Indication: ARTHRALGIA
     Dosage: 500 MG 2 PER DAY
  3. DIPHENHYDRAMINE HCL [Concomitant]
  4. CONJUGTED ESTROGENS (ESTROGENS, CONJUGATED) [Concomitant]
  5. METOCLOPRAMIDE [Concomitant]
  6. FENOFIBRATE [Concomitant]
  7. VENLAFAXINE HCL [Concomitant]
  8. PANTOPRAZOLE SODIUM [Concomitant]

REACTIONS (1)
  - NEPHROPATHY TOXIC [None]
